FAERS Safety Report 17420833 (Version 2)
Quarter: 2020Q2

REPORT INFORMATION
  Report Type: Spontaneous
  Country: US (occurrence: US)
  Receive Date: 20200214
  Receipt Date: 20200626
  Transmission Date: 20200713
  Serious: Yes (Hospitalization)
  Sender: FDA-Public Use
  Company Number: US-PFIZER INC-2020065702

PATIENT
  Age: 73 Year
  Sex: Female

DRUGS (1)
  1. SERTRALINE HCL [Suspect]
     Active Substance: SERTRALINE HYDROCHLORIDE
     Dosage: 25 MG, UNK

REACTIONS (9)
  - Condition aggravated [Not Recovered/Not Resolved]
  - Cardiac arrest [Unknown]
  - Feeling abnormal [Not Recovered/Not Resolved]
  - Panic reaction [Unknown]
  - Speech disorder [Unknown]
  - Emotional disorder [Not Recovered/Not Resolved]
  - Pain [Not Recovered/Not Resolved]
  - Anxiety [Unknown]
  - Malnutrition [Not Recovered/Not Resolved]
